FAERS Safety Report 5381474-9 (Version None)
Quarter: 2007Q2

REPORT INFORMATION
  Report Type: 
  Country: None (occurrence: None)
  Receive Date: 20070629
  Receipt Date: 20060624
  Transmission Date: 20071010
  Serious: Yes (Other)
  Sender: FDA-Public Use
  Company Number: 2006045714

PATIENT
  Age: 55 Year
  Sex: Male
  Weight: 74.3899 kg

DRUGS (2)
  1. ZOLOFT [Suspect]
     Indication: DEPRESSION
     Dosage: 50 MG (50 MG, DAILY   INTERVAL: EVERY DAY),
  2. SEROQUEL [Concomitant]

REACTIONS (4)
  - DRUG INEFFECTIVE [None]
  - LIBIDO DECREASED [None]
  - POLYDIPSIA [None]
  - POLYURIA [None]
